FAERS Safety Report 22165388 (Version 1)
Quarter: 2023Q2

REPORT INFORMATION
  Report Type: Other
  Country: GB (occurrence: GB)
  Receive Date: 20230403
  Receipt Date: 20230403
  Transmission Date: 20230722
  Serious: Yes (Hospitalization, Other)
  Sender: FDA-Public Use
  Company Number: GB-MHRA-MED-202303221617469940-FKWSC

PATIENT

DRUGS (3)
  1. SERTRALINE [Suspect]
     Active Substance: SERTRALINE HYDROCHLORIDE
     Indication: Anxiety
     Dosage: UNK, 100
     Route: 065
     Dates: start: 20190501
  2. ASPIRIN [Suspect]
     Active Substance: ASPIRIN
     Indication: Protein total decreased
     Dosage: 150
     Route: 065
     Dates: start: 202211
  3. FOLIC ACID [Concomitant]
     Active Substance: FOLIC ACID
     Indication: Vitamin supplementation
     Dosage: 400 MICROGRAM
     Route: 065

REACTIONS (7)
  - Medication error [Unknown]
  - Maternal exposure during pregnancy [Unknown]
  - Gastric ulcer perforation [Recovering/Resolving]
  - Regurgitation [Not Recovered/Not Resolved]
  - Discoloured vomit [Recovering/Resolving]
  - Gastrooesophageal reflux disease [Not Recovered/Not Resolved]
  - Vomiting [Recovered/Resolved]

NARRATIVE: CASE EVENT DATE: 20221001
